FAERS Safety Report 16690564 (Version 2)
Quarter: 2019Q4

REPORT INFORMATION
  Report Type: Report from Study
  Country: FR (occurrence: FR)
  Receive Date: 20190810
  Receipt Date: 20191028
  Transmission Date: 20200122
  Serious: Yes (Death, Other)
  Sender: FDA-Public Use
  Company Number: FR-JAZZ-2019-FR-010795

PATIENT

DRUGS (6)
  1. DEFITELIO [Suspect]
     Active Substance: DEFIBROTIDE SODIUM
     Indication: VENOOCCLUSIVE LIVER DISEASE
     Dosage: 28 MG/KG, QD
     Dates: start: 20180305
  2. DEFITELIO [Suspect]
     Active Substance: DEFIBROTIDE SODIUM
     Indication: PULMONARY VENO-OCCLUSIVE DISEASE
  3. TAZOCILLINE [Suspect]
     Active Substance: PIPERACILLIN SODIUM\TAZOBACTAM SODIUM
     Indication: PYREXIA
     Dosage: 4 G, QID
     Route: 042
     Dates: start: 20180222, end: 20180302
  4. TIENAM [Suspect]
     Active Substance: CILASTATIN SODIUM\IMIPENEM
     Indication: SEPSIS
     Dosage: UNK
     Route: 042
     Dates: start: 20180307, end: 20180312
  5. TAZOCILLINE [Suspect]
     Active Substance: PIPERACILLIN SODIUM\TAZOBACTAM SODIUM
     Indication: DIARRHOEA
  6. FOSCAVIR [Suspect]
     Active Substance: FOSCARNET SODIUM
     Indication: DISEASE RECURRENCE
     Dosage: UNK
     Route: 042
     Dates: start: 20180228, end: 20180315

REACTIONS (6)
  - Multiple organ dysfunction syndrome [Unknown]
  - Hepatitis [Fatal]
  - Intentional product use issue [Unknown]
  - Metrorrhagia [Unknown]
  - Pulmonary toxicity [Fatal]
  - Overdose [Unknown]

NARRATIVE: CASE EVENT DATE: 20180305
